FAERS Safety Report 4796781-8 (Version None)
Quarter: 2005Q3

REPORT INFORMATION
  Report Type: 
  Country: None (occurrence: None)
  Receive Date: 20050916
  Receipt Date: 20050408
  Transmission Date: 20060218
  Serious: Yes (Hospitalization)
  Sender: FDA-Public Use
  Company Number: US-JNJFOC-20050402702

PATIENT
  Sex: Female

DRUGS (2)
  1. TOPAMAX [Suspect]
     Indication: EPILEPSY
     Dosage: ORAL
     Route: 048
     Dates: start: 20030101
  2. DEPOKOTE (VALPROATE SEMISODIUM) [Concomitant]

REACTIONS (2)
  - DRUG EXPOSURE DURING PREGNANCY [None]
  - PANCREATITIS [None]
